FAERS Safety Report 6759976-X (Version None)
Quarter: 2010Q2

REPORT INFORMATION
  Report Type: 
  Country: None (occurrence: None)
  Receive Date: 20100608
  Receipt Date: 20100526
  Transmission Date: 20101027
  Serious: Yes (Other)
  Sender: FDA-Public Use
  Company Number: PHHY2009CA59564

PATIENT
  Sex: Female

DRUGS (3)
  1. LOPRESSOR [Suspect]
  2. HYZAAR [Suspect]
  3. ASPIRIN [Suspect]

REACTIONS (3)
  - DRUG DOSE OMISSION [None]
  - HEART RATE INCREASED [None]
  - PALPITATIONS [None]
